FAERS Safety Report 8641789 (Version 2)
Quarter: 2013Q3

REPORT INFORMATION
  Report Type: Spontaneous
  Country: US (occurrence: None)
  Receive Date: 20120614
  Receipt Date: 20130802
  Transmission Date: 20140515
  Serious: Yes (Hospitalization, Other)
  Sender: FDA-Public Use
  Company Number: 2012-001

PATIENT
  Age: 54 Year
  Sex: Male
  Weight: 76.2 kg

DRUGS (8)
  1. DAPSONE [Suspect]
     Indication: ERYTHEMA MARGINATUM
     Dosage: 1/2 TAB
     Route: 048
     Dates: start: 20120323, end: 20120418
  2. SINGULAIR [Concomitant]
  3. ATROVENT [Concomitant]
  4. ALBUTEROL [Concomitant]
  5. SPIRONOLACTONE [Concomitant]
  6. CHOLESTEROL LOWERING DRUG [Concomitant]
  7. STEROIDS [Concomitant]
  8. VIT D [Concomitant]

REACTIONS (16)
  - Headache [None]
  - Neck pain [None]
  - Abdominal pain [None]
  - Nausea [None]
  - Pyrexia [None]
  - Liver function test abnormal [None]
  - Aspartate aminotransferase increased [None]
  - Alanine aminotransferase increased [None]
  - Viral rash [None]
  - Erythema [None]
  - Tongue disorder [None]
  - Blister [None]
  - Skin graft [None]
  - Asthenia [None]
  - Impaired work ability [None]
  - Anaemia [None]
